FAERS Safety Report 16418673 (Version 3)
Quarter: 2019Q3

REPORT INFORMATION
  Report Type: Spontaneous
  Country: FR (occurrence: FR)
  Receive Date: 20190612
  Receipt Date: 20190710
  Transmission Date: 20191004
  Serious: Yes (Other)
  Sender: FDA-Public Use
  Company Number: FR-AMGEN-FRASP2019093216

PATIENT
  Age: 57 Year
  Sex: Female
  Weight: 66 kg

DRUGS (13)
  1. SORIATANE [Suspect]
     Active Substance: ACITRETIN
     Indication: PITYRIASIS RUBRA PILARIS
     Dosage: UNK
     Route: 065
     Dates: start: 201804, end: 201808
  2. METHOTREXATE SODIUM. [Suspect]
     Active Substance: METHOTREXATE SODIUM
     Indication: PSORIASIS
     Dosage: UNK
     Route: 065
     Dates: start: 2014, end: 2014
  3. COSENTYX [Suspect]
     Active Substance: SECUKINUMAB
     Dosage: 300 MG, Q15D
     Route: 058
     Dates: end: 201804
  4. HYDROCHLOROTHIAZIDE. [Suspect]
     Active Substance: HYDROCHLOROTHIAZIDE
     Indication: HYPERTENSION
     Dosage: 25 MILLIGRAM, QD
     Route: 048
  5. METHOTREXATE [METHOTREXATE SODIUM] [Suspect]
     Active Substance: METHOTREXATE SODIUM
     Indication: PSORIASIS
     Dosage: UNK
     Route: 065
     Dates: start: 2014, end: 2014
  6. RAMIPRIL. [Suspect]
     Active Substance: RAMIPRIL
     Indication: HYPERTENSION
     Dosage: 25 MILLIGRAM, QD
     Route: 048
  7. COSENTYX [Suspect]
     Active Substance: SECUKINUMAB
     Indication: PSORIASIS
     Dosage: 300 MILLIGRAM, (WEEKLY EVERY 5 WEEKS, THEN ONCE MONTHLY AND THEN ONCE EVERY 15 DAYS)
     Route: 058
     Dates: start: 20170221, end: 201804
  8. RAMIPRIL. [Suspect]
     Active Substance: RAMIPRIL
     Dosage: 25 MG, QD
     Route: 048
  9. TOCTINO [Suspect]
     Active Substance: ALITRETINOIN
     Indication: PITYRIASIS RUBRA PILARIS
     Dosage: UNK
     Route: 048
     Dates: start: 201810, end: 20190501
  10. COSENTYX [Suspect]
     Active Substance: SECUKINUMAB
     Dosage: 300 MILLIGRAM, QMO
     Route: 058
  11. HUMIRA [Suspect]
     Active Substance: ADALIMUMAB
     Indication: PSORIASIS
     Dosage: UNK
     Route: 058
     Dates: start: 20151215, end: 201606
  12. ENBREL [Suspect]
     Active Substance: ETANERCEPT
     Indication: PSORIASIS
     Dosage: UNK
     Route: 058
     Dates: start: 201503, end: 20151215
  13. STELARA [Suspect]
     Active Substance: USTEKINUMAB
     Indication: PSORIASIS
     Dosage: UNK
     Route: 058
     Dates: start: 201606, end: 20170221

REACTIONS (1)
  - Breast cancer [Not Recovered/Not Resolved]

NARRATIVE: CASE EVENT DATE: 201905
